FAERS Safety Report 5335221-7 (Version None)
Quarter: 2007Q2

REPORT INFORMATION
  Report Type: 
  Country: None (occurrence: None)
  Receive Date: 20070525
  Receipt Date: 20070516
  Transmission Date: 20071010
  Serious: Yes (Hospitalization, Other)
  Sender: FDA-Public Use
  Company Number: JP-PFIZER INC-2007037867

PATIENT
  Sex: Male
  Weight: 67 kg

DRUGS (14)
  1. SALAZOPYRIN [Suspect]
     Indication: ENTEROCOLITIS
     Dates: start: 20070410, end: 20070506
  2. LAC B [Concomitant]
     Route: 048
  3. TRANCOLON [Concomitant]
     Route: 048
     Dates: start: 20070327, end: 20070419
  4. ALBUMIN TANNATE [Concomitant]
     Route: 048
     Dates: start: 20070410, end: 20070414
  5. PREDONINE [Concomitant]
     Route: 048
     Dates: start: 20070410, end: 20070505
  6. CALBLOCK [Concomitant]
     Route: 048
  7. CERCINE [Concomitant]
     Route: 048
     Dates: start: 20070410, end: 20070426
  8. ALOSENN [Concomitant]
     Route: 048
     Dates: start: 20070424, end: 20070505
  9. MAGNESIUM OXIDE [Concomitant]
     Route: 048
     Dates: start: 20070420, end: 20070505
  10. LENDORMIN [Concomitant]
     Route: 048
  11. CELTECT [Concomitant]
     Route: 048
     Dates: start: 20070323, end: 20070417
  12. ADSORBIN [Concomitant]
     Route: 048
     Dates: start: 20070410, end: 20070414
  13. BISMUTH SUBNITRATE [Concomitant]
     Route: 048
     Dates: start: 20070410, end: 20070414
  14. SCOPOLIA EXTRACT [Concomitant]
     Route: 048
     Dates: start: 20070410, end: 20070414

REACTIONS (2)
  - TOXIC SKIN ERUPTION [None]
  - WHITE BLOOD CELL COUNT DECREASED [None]
